FAERS Safety Report 8502709 (Version 3)
Quarter: 2013Q2

REPORT INFORMATION
  Report Type: Spontaneous
  Country: US (occurrence: US)
  Receive Date: 20120410
  Receipt Date: 20130415
  Transmission Date: 20140414
  Serious: Yes (Hospitalization)
  Sender: FDA-Public Use
  Company Number: US-BAYER-2012-033140

PATIENT
  Age: 31 Year
  Sex: Female

DRUGS (9)
  1. YAZ [Suspect]
     Indication: CONTRACEPTION
  2. GIANVI [Suspect]
     Dosage: UNK
     Dates: start: 201006
  3. CEPHALEXIN [Concomitant]
  4. MAGNESIUM OXIDE [Concomitant]
  5. TOPAMAX [Concomitant]
     Dosage: 100 MG, UNK
  6. DOXEPIN [Concomitant]
     Dosage: 100 MG, UNK
  7. PRISTIQ [Concomitant]
     Dosage: 100 MG, UNK
  8. KLONOPIN [Concomitant]
     Dosage: 0.5 MG, MORNING/ NIGHT
  9. ADDERALL [Concomitant]

REACTIONS (3)
  - Deep vein thrombosis [Recovered/Resolved]
  - Injury [Recovered/Resolved]
  - Pain [Recovered/Resolved]
